FAERS Safety Report 21683954 (Version 3)
Quarter: 2023Q1

REPORT INFORMATION
  Report Type: Spontaneous
  Country: TW (occurrence: TW)
  Receive Date: 20221205
  Receipt Date: 20230216
  Transmission Date: 20230418
  Serious: Yes (Death, Hospitalization, Other)
  Sender: FDA-Public Use
  Company Number: TW-DSJP-DSJ-2022-143176

PATIENT
  Age: 71 Year
  Sex: Female
  Weight: 57 kg

DRUGS (13)
  1. TRASTUZUMAB DERUXTECAN [Suspect]
     Active Substance: TRASTUZUMAB DERUXTECAN
     Indication: Breast cancer metastatic
     Dosage: 200, ONCE EVERY 3 WK
     Route: 065
     Dates: start: 2022
  2. AMIODARONE [Suspect]
     Active Substance: AMIODARONE
     Indication: Cardiac failure congestive
     Dosage: 200 MG, QD
     Route: 065
     Dates: start: 202203
  3. AMIODARONE [Suspect]
     Active Substance: AMIODARONE
     Indication: Atrial fibrillation
  4. IVABRADINE [Concomitant]
     Active Substance: IVABRADINE
     Indication: Cardiac failure congestive
     Dosage: 5 MG, QD
     Route: 065
     Dates: start: 202203
  5. IVABRADINE [Concomitant]
     Active Substance: IVABRADINE
     Indication: Atrial fibrillation
  6. BISOPROLOL [Concomitant]
     Active Substance: BISOPROLOL
     Indication: Atrial fibrillation
     Dosage: 1.25 MG, QD
     Route: 065
     Dates: start: 202203
  7. BISOPROLOL [Concomitant]
     Active Substance: BISOPROLOL
     Indication: Cardiac failure congestive
  8. VALSARTAN [Concomitant]
     Active Substance: VALSARTAN
     Indication: Cardiac failure congestive
     Dosage: 20 MG, QOD
     Route: 065
     Dates: start: 202203
  9. VALSARTAN [Concomitant]
     Active Substance: VALSARTAN
     Indication: Atrial fibrillation
  10. SPIRONOLACTONE [Concomitant]
     Active Substance: SPIRONOLACTONE
     Indication: Cardiac failure congestive
     Dosage: 25 MG, QOD
     Route: 065
     Dates: start: 202203
  11. SPIRONOLACTONE [Concomitant]
     Active Substance: SPIRONOLACTONE
     Indication: Atrial fibrillation
  12. DAPAGLIFLOZIN [Concomitant]
     Active Substance: DAPAGLIFLOZIN
     Indication: Cardiac failure congestive
     Dosage: 10 MG, QD
     Route: 065
     Dates: start: 202203
  13. DAPAGLIFLOZIN [Concomitant]
     Active Substance: DAPAGLIFLOZIN
     Indication: Atrial fibrillation

REACTIONS (7)
  - Asthma [Fatal]
  - Discomfort [Fatal]
  - Pneumonia [Unknown]
  - Septic shock [Fatal]
  - Interstitial lung disease [Fatal]
  - COVID-19 pneumonia [Unknown]
  - Pneumonitis [Unknown]

NARRATIVE: CASE EVENT DATE: 20221101
